FAERS Safety Report 5978498-7 (Version None)
Quarter: 2008Q4

REPORT INFORMATION
  Report Type: 
  Country: None (occurrence: None)
  Receive Date: 20081126
  Receipt Date: 20081117
  Transmission Date: 20090506
  Serious: Yes (Other)
  Sender: FDA-Public Use
  Company Number: 08-619

PATIENT
  Age: 79 Year
  Sex: Female
  Weight: 68.0396 kg

DRUGS (6)
  1. VITAMIN D [Suspect]
     Indication: OSTEOPOROSIS
     Dosage: 1.25 MG, MONTHLY, ORAL
     Route: 048
     Dates: start: 20080701, end: 20080901
  2. LISINOPRIL [Concomitant]
  3. ZEGERID [Concomitant]
  4. LIPITOR [Concomitant]
  5. LEVOTHYROXANE [Concomitant]
  6. PLAVIX-THEARPY [Concomitant]

REACTIONS (1)
  - CEREBROVASCULAR ACCIDENT [None]
